FAERS Safety Report 23247297 (Version 3)
Quarter: 2024Q3

REPORT INFORMATION
  Report Type: Report from Study
  Country: US (occurrence: US)
  Receive Date: 20231130
  Receipt Date: 20240918
  Transmission Date: 20241017
  Serious: Yes (Other)
  Sender: ALEXION PHARMACEUTICALS
  Company Number: US-ALXN-A202212997

PATIENT
  Sex: Female

DRUGS (1)
  1. STRENSIQ [Suspect]
     Active Substance: ASFOTASE ALFA
     Indication: Hypophosphatasia
     Dosage: UNK
     Route: 065

REACTIONS (13)
  - Rheumatoid arthritis [Unknown]
  - Burning sensation [Not Recovered/Not Resolved]
  - Injection site discomfort [Unknown]
  - Joint injury [Unknown]
  - Fall [Unknown]
  - Joint effusion [Recovered/Resolved]
  - Depression [Unknown]
  - Anxiety [Unknown]
  - Stress fracture [Recovered/Resolved]
  - Injection site pain [Unknown]
  - Injection site bruising [Unknown]
  - Injection site haemorrhage [Unknown]
  - Feeling abnormal [Unknown]
